FAERS Safety Report 17954039 (Version 2)
Quarter: 2020Q3

REPORT INFORMATION
  Report Type: Report from Study
  Country: US (occurrence: US)
  Receive Date: 20200629
  Receipt Date: 20200702
  Transmission Date: 20201103
  Serious: Yes (Death, Life-Threatening, Hospitalization, Other)
  Sender: FDA-Public Use
  Company Number: US-TAIHO ONCOLOGY  INC-EU-2020-01913

PATIENT
  Age: 80 Year
  Sex: Female

DRUGS (7)
  1. LEXAPRO [Concomitant]
     Active Substance: ESCITALOPRAM OXALATE
  2. TRAMADOL. [Concomitant]
     Active Substance: TRAMADOL
  3. GABAPENTIN. [Concomitant]
     Active Substance: GABAPENTIN
  4. LOMOTIL [Concomitant]
     Active Substance: ATROPINE SULFATE\DIPHENOXYLATE HYDROCHLORIDE
  5. OMEPRAZOLE. [Concomitant]
     Active Substance: OMEPRAZOLE
  6. XARELTO [Concomitant]
     Active Substance: RIVAROXABAN
  7. LONSURF [Suspect]
     Active Substance: TIPIRACIL HYDROCHLORIDE\TRIFLURIDINE
     Indication: COLON CANCER
     Dosage: CURRENT CYCLE UNKNOWN, ONGOING
     Route: 048
     Dates: start: 20200406

REACTIONS (12)
  - Anaemia [Unknown]
  - Vomiting [Unknown]
  - Head injury [Unknown]
  - Cytopenia [Unknown]
  - Decreased appetite [Not Recovered/Not Resolved]
  - Myocardial necrosis marker increased [Unknown]
  - Fatigue [Not Recovered/Not Resolved]
  - Death [Fatal]
  - Product dose omission issue [Unknown]
  - Cerebral haemorrhage [Unknown]
  - Pneumonia aspiration [Unknown]
  - Fall [Unknown]

NARRATIVE: CASE EVENT DATE: 202006
